FAERS Safety Report 6130470-2 (Version None)
Quarter: 2009Q1

REPORT INFORMATION
  Report Type: 
  Country: None (occurrence: None)
  Receive Date: 20090323
  Receipt Date: 20090308
  Transmission Date: 20090719
  Serious: Yes (Other)
  Sender: FDA-Public Use
  Company Number: 2006S1007500

PATIENT
  Age: 75 Year
  Sex: Male
  Weight: 68.0396 kg

DRUGS (11)
  1. PHOSPHOSODA FLAVOR NOT SPECIFIED [Suspect]
     Indication: COLONOSCOPY
     Dosage: ; PO
     Route: 048
     Dates: start: 20050216
  2. LEVOXYL [Concomitant]
  3. CARDENE [Concomitant]
  4. GLUCOPHAGE [Concomitant]
  5. PRAVACHOL [Concomitant]
  6. ASPIRIN [Concomitant]
  7. REZULIN [Concomitant]
  8. VITAMIN E /00110501/ [Concomitant]
  9. ACTOS [Concomitant]
  10. LIPITOR [Concomitant]
  11. MAGNESIUM CITRATE [Concomitant]

REACTIONS (14)
  - ABDOMINAL PAIN [None]
  - ARTERIOSCLEROSIS [None]
  - COLONIC POLYP [None]
  - DEHYDRATION [None]
  - DIVERTICULUM INTESTINAL [None]
  - FATIGUE [None]
  - GLOMERULOSCLEROSIS [None]
  - KIDNEY FIBROSIS [None]
  - PROSTATOMEGALY [None]
  - RENAL CYST [None]
  - RENAL FAILURE ACUTE [None]
  - RENAL FAILURE CHRONIC [None]
  - RENAL TUBULAR ATROPHY [None]
  - RENAL TUBULAR NECROSIS [None]
